FAERS Safety Report 22079076 (Version 1)
Quarter: 2023Q1

REPORT INFORMATION
  Report Type: Spontaneous
  Country: US (occurrence: None)
  Receive Date: 20230309
  Receipt Date: 20230309
  Transmission Date: 20230417
  Serious: Yes (Other)
  Sender: FDA-Public Use
  Company Number: None

PATIENT
  Age: 71 Year
  Sex: Female
  Weight: 62.55 kg

DRUGS (2)
  1. VTAMA [Suspect]
     Active Substance: TAPINAROF
     Indication: Psoriasis
     Dosage: OTHER QUANTITY : 1 SPREAD THINLY;?FREQUENCY : DAILY;?
     Route: 061
     Dates: start: 20230215, end: 20230216
  2. VITAMIN D [Concomitant]
     Active Substance: VITAMIN D NOS

REACTIONS (6)
  - Application site rash [None]
  - Rash pruritic [None]
  - Rash macular [None]
  - Rash [None]
  - Swelling face [None]
  - Rash [None]

NARRATIVE: CASE EVENT DATE: 20230217
